FAERS Safety Report 4941313-4 (Version None)
Quarter: 2006Q1

REPORT INFORMATION
  Report Type: 
  Country: None (occurrence: None)
  Receive Date: 20060313
  Receipt Date: 20050419
  Transmission Date: 20060701
  Serious: Yes (Hospitalization, Other)
  Sender: FDA-Public Use
  Company Number: US-MERCK-0504USA03815

PATIENT
  Age: 74 Year
  Sex: Male
  Weight: 84 kg

DRUGS (3)
  1. VIOXX [Suspect]
     Indication: ARTHRITIS
     Route: 048
     Dates: start: 19990101, end: 20040901
  2. VIOXX [Suspect]
     Route: 048
     Dates: start: 20010627, end: 20030701
  3. VIOXX [Suspect]
     Route: 048
     Dates: start: 20030701, end: 20040101

REACTIONS (17)
  - ABDOMINAL PAIN [None]
  - AORTIC ANEURYSM [None]
  - BRADYCARDIA [None]
  - CHEST PAIN [None]
  - CORONARY ARTERY DISEASE [None]
  - DEPRESSION [None]
  - ERECTILE DYSFUNCTION [None]
  - GASTROOESOPHAGEAL REFLUX DISEASE [None]
  - HYPERLIPIDAEMIA [None]
  - HYPERTENSION [None]
  - IRON DEFICIENCY ANAEMIA [None]
  - MYOCARDIAL INFARCTION [None]
  - OCCULT BLOOD POSITIVE [None]
  - OSTEOARTHRITIS [None]
  - PANCREATITIS ACUTE [None]
  - SHOULDER PAIN [None]
  - VENTRICULAR EXTRASYSTOLES [None]
